FAERS Safety Report 5792497-X (Version None)
Quarter: 2008Q2

REPORT INFORMATION
  Report Type: 
  Country: None (occurrence: None)
  Receive Date: 20080626
  Receipt Date: 20080618
  Transmission Date: 20081010
  Serious: Yes (Other)
  Sender: FDA-Public Use
  Company Number: GB-MERCK-0806GBR00080

PATIENT
  Age: 20 Year
  Sex: Female

DRUGS (3)
  1. TIMOPTIC [Suspect]
     Indication: INTRAOCULAR PRESSURE INCREASED
     Route: 047
  2. BRIMONIDINE TARTRATE [Suspect]
     Route: 047
  3. LATANOPROST [Suspect]
     Route: 047

REACTIONS (3)
  - DRUG INEFFECTIVE [None]
  - IRIS ADHESIONS [None]
  - VITREOUS HAEMORRHAGE [None]
